FAERS Safety Report 4760136-2 (Version None)
Quarter: 2005Q3

REPORT INFORMATION
  Report Type: 
  Country: None (occurrence: None)
  Receive Date: 20050902
  Receipt Date: 20050705
  Transmission Date: 20060218
  Serious: No
  Sender: FDA-Public Use
  Company Number: US-GLAXOSMITHKLINE-A0564948A

PATIENT
  Age: 67 Year
  Sex: Female

DRUGS (5)
  1. REQUIP [Suspect]
     Indication: PARKINSON'S DISEASE
     Dosage: 3MG SIX TIMES PER DAY
     Route: 048
  2. SINEMET [Concomitant]
  3. NEXIUM [Concomitant]
  4. COZAAR [Concomitant]
  5. DETROL [Concomitant]

REACTIONS (8)
  - ABASIA [None]
  - CARDIOVASCULAR DISORDER [None]
  - CONSTIPATION [None]
  - DYSPNOEA [None]
  - INSOMNIA [None]
  - NAUSEA [None]
  - SOMNOLENCE [None]
  - VEIN DISORDER [None]
